FAERS Safety Report 16348110 (Version 2)
Quarter: 2020Q2

REPORT INFORMATION
  Report Type: Spontaneous
  Country: US (occurrence: US)
  Receive Date: 20190523
  Receipt Date: 20200526
  Transmission Date: 20200713
  Serious: No
  Sender: FDA-Public Use
  Company Number: US-IGSA-SR10007608

PATIENT
  Age: 38 Year
  Sex: Female
  Weight: 59 kg

DRUGS (15)
  1. VITAMIN D                          /00107901/ [Concomitant]
     Active Substance: ERGOCALCIFEROL
  2. GAMUNEX-C [Suspect]
     Active Substance: HUMAN IMMUNOGLOBULIN G
     Indication: IMMUNODEFICIENCY COMMON VARIABLE
     Dosage: 20 G, Q.WK.
     Route: 042
     Dates: start: 20190102, end: 20190102
  3. LOVENOX [Concomitant]
     Active Substance: ENOXAPARIN SODIUM
  4. METFORMIN ER [Concomitant]
     Active Substance: METFORMIN HYDROCHLORIDE
     Dosage: 750 MG, UNK
  5. PROGESTERONE IN OIL [Concomitant]
     Active Substance: PROGESTERONE
  6. PRENATAL                           /00231801/ [Concomitant]
     Active Substance: VITAMINS
  7. GAMUNEX-C [Suspect]
     Active Substance: HUMAN IMMUNOGLOBULIN G
     Dosage: 5 G, Q.WK.
     Route: 042
     Dates: start: 20190102, end: 20190102
  8. ESTRADIOL                          /00045402/ [Concomitant]
     Route: 048
  9. PREDNISONE                         /00044702/ [Concomitant]
     Active Substance: PREDNISONE
  10. CALCIUM                            /00060701/ [Concomitant]
     Active Substance: CALCIUM
  11. PROGESTERONE. [Concomitant]
     Active Substance: PROGESTERONE
     Route: 048
  12. VITAMIN E                          /00110501/ [Concomitant]
     Active Substance: TOCOPHEROL
  13. FOLIC ACID. [Concomitant]
     Active Substance: FOLIC ACID
  14. ASPIRIN                            /00002701/ [Concomitant]
     Active Substance: ASPIRIN
  15. ESTRADIOL                          /00045402/ [Concomitant]
     Route: 062

REACTIONS (5)
  - Flushing [Recovered/Resolved]
  - Swelling face [Recovered/Resolved]
  - Feeling hot [Recovered/Resolved]
  - Pruritus [Recovered/Resolved]
  - Exposure during pregnancy [Recovered/Resolved]

NARRATIVE: CASE EVENT DATE: 20190102
